FAERS Safety Report 26007845 (Version 1)
Quarter: 2025Q4

REPORT INFORMATION
  Report Type: Spontaneous
  Country: US (occurrence: None)
  Receive Date: 20251105
  Receipt Date: 20251105
  Transmission Date: 20260117
  Serious: Yes (Hospitalization)
  Sender: FDA-CTU
  Company Number: None

PATIENT
  Age: 75 Year
  Sex: Male

DRUGS (1)
  1. JAYPIRCA [Suspect]
     Active Substance: PIRTOBRUTINIB
     Indication: Waldenstrom^s macroglobulinaemia
     Dosage: 200 MG DAILY ORAL ?
     Route: 048

REACTIONS (2)
  - Abdominal pain upper [None]
  - Mesenteric arterial occlusion [None]

NARRATIVE: CASE EVENT DATE: 20251010
